FAERS Safety Report 13281848 (Version 3)
Quarter: 2017Q3

REPORT INFORMATION
  Report Type: Report from Study
  Country: US (occurrence: US)
  Receive Date: 20170301
  Receipt Date: 20170801
  Transmission Date: 20171127
  Serious: Yes (Death, Other)
  Sender: FDA-Public Use
  Company Number: US-ROCHE-1899074

PATIENT

DRUGS (4)
  1. ALTEPLASE. [Suspect]
     Active Substance: ALTEPLASE
     Indication: ACUTE MYOCARDIAL INFARCTION
     Route: 065
  2. HEPARIN [Suspect]
     Active Substance: HEPARIN SODIUM
     Indication: ACUTE MYOCARDIAL INFARCTION
     Route: 065
  3. ASPIRIN. [Suspect]
     Active Substance: ASPIRIN
     Indication: ACUTE MYOCARDIAL INFARCTION
     Route: 065
  4. WARFARIN [Suspect]
     Active Substance: WARFARIN
     Indication: ACUTE MYOCARDIAL INFARCTION
     Route: 065

REACTIONS (17)
  - Haematochezia [Unknown]
  - Haematemesis [Unknown]
  - Haemarthrosis [Unknown]
  - Ecchymosis [Unknown]
  - Haematuria [Unknown]
  - Epistaxis [Unknown]
  - Gingival bleeding [Unknown]
  - Haemorrhage [Unknown]
  - Petechiae [Unknown]
  - Contusion [Unknown]
  - Haemoptysis [Unknown]
  - Cerebrovascular disorder [Fatal]
  - Haematoma [Unknown]
  - Gastrointestinal haemorrhage [Unknown]
  - Oesophageal haemorrhage [Unknown]
  - Catheter site haemorrhage [Unknown]
  - Ear haemorrhage [Unknown]
